FAERS Safety Report 5776161-9 (Version None)
Quarter: 2008Q2

REPORT INFORMATION
  Report Type: 
  Country: None (occurrence: None)
  Receive Date: 20080613
  Receipt Date: 20080603
  Transmission Date: 20081010
  Serious: Yes (Hospitalization)
  Sender: FDA-Public Use
  Company Number: CIP08000996

PATIENT
  Age: 82 Year
  Sex: Female

DRUGS (2)
  1. BENET(RISEDRONATE SODIUM) TALBET, 2.5MG [Suspect]
     Indication: OSTEOPOROSIS
     Dosage: 2.5 MG DAILY, ORAL
     Route: 048
     Dates: end: 20080502
  2. CORTICOSTEROIDS() [Suspect]
     Indication: RHEUMATOID ARTHRITIS
     Dosage: ORAL
     Route: 048

REACTIONS (3)
  - ORAL INTAKE REDUCED [None]
  - OSTEOMYELITIS [None]
  - SWELLING FACE [None]
